FAERS Safety Report 10213868 (Version 1)
Quarter: 2014Q2

REPORT INFORMATION
  Report Type: Spontaneous
  Country: FR (occurrence: None)
  Receive Date: 20140529
  Receipt Date: 20140529
  Transmission Date: 20141212
  Serious: Yes (Other)
  Sender: FDA-Public Use
  Company Number: E7389-02876-SPO-FR

PATIENT
  Sex: Female

DRUGS (1)
  1. HALAVEN [Suspect]
     Dosage: INTRAVENOUS INFUSION
     Route: 042
     Dates: start: 20120813, end: 20120813

REACTIONS (1)
  - Drug hypersensitivity [None]
